FAERS Safety Report 24833735 (Version 2)
Quarter: 2025Q1

REPORT INFORMATION
  Report Type: Report from Study
  Country: US (occurrence: US)
  Receive Date: 20250112
  Receipt Date: 20250215
  Transmission Date: 20250409
  Serious: Yes (Other)
  Sender: ABBVIE
  Company Number: US-ABBVIE-6073924

PATIENT

DRUGS (1)
  1. ELAGOLIX [Suspect]
     Active Substance: ELAGOLIX
     Indication: Maternal exposure timing unspecified
     Route: 064

REACTIONS (5)
  - Brief resolved unexplained event [Unknown]
  - Poor weight gain neonatal [Unknown]
  - Unevaluable event [Unknown]
  - Tethered oral tissue [Unknown]
  - Foetal exposure during pregnancy [Unknown]

NARRATIVE: CASE EVENT DATE: 20240701
